FAERS Safety Report 15845794 (Version 2)
Quarter: 2025Q3

REPORT INFORMATION
  Report Type: Spontaneous
  Country: EU (occurrence: EU)
  Receive Date: 20190120
  Receipt Date: 20250709
  Transmission Date: 20251021
  Serious: Yes (Hospitalization)
  Sender: AUROBINDO
  Company Number: EU-AUROBINDO-AUR-APL-2019-001731

PATIENT
  Age: 12 Year
  Sex: Male

DRUGS (3)
  1. ACETAMINOPHEN [Suspect]
     Active Substance: ACETAMINOPHEN
     Indication: Headache
     Route: 065
  2. ACETAMINOPHEN [Suspect]
     Active Substance: ACETAMINOPHEN
     Indication: Pyrexia
     Route: 042
     Dates: start: 20140613
  3. METOCLOPRAMIDE [Suspect]
     Active Substance: METOCLOPRAMIDE
     Indication: Vomiting
     Dosage: 5 MG, QD
     Route: 042
     Dates: start: 20140613

REACTIONS (10)
  - Drug ineffective [Unknown]
  - Dystonia [Recovered/Resolved]
  - Anxiety [Recovered/Resolved]
  - Extrapyramidal disorder [Recovered/Resolved]
  - Psychomotor hyperactivity [Recovered/Resolved]
  - Post-traumatic neck syndrome [Unknown]
  - Discomfort [Recovered/Resolved]
  - Agitation [Unknown]
  - Leukocytosis [Unknown]
  - Headache [Recovered/Resolved]

NARRATIVE: CASE EVENT DATE: 20140613
